FAERS Safety Report 18151261 (Version 1)
Quarter: 2020Q3

REPORT INFORMATION
  Report Type: Spontaneous
  Country: US (occurrence: US)
  Receive Date: 20200814
  Receipt Date: 20200814
  Transmission Date: 20201103
  Serious: Yes (Other)
  Sender: FDA-Public Use
  Company Number: None

PATIENT
  Age: 68 Year
  Sex: Female

DRUGS (1)
  1. ENBREL [Suspect]
     Active Substance: ETANERCEPT
     Indication: PRODUCT USED FOR UNKNOWN INDICATION
     Dosage: ?          OTHER FREQUENCY:QWK;?
     Route: 058
     Dates: start: 20180304

REACTIONS (3)
  - Malignant melanoma [None]
  - Skin haemorrhage [None]
  - Skin cancer [None]

NARRATIVE: CASE EVENT DATE: 20200813
